FAERS Safety Report 15147618 (Version 2)
Quarter: 2018Q3

REPORT INFORMATION
  Report Type: Spontaneous
  Country: US (occurrence: US)
  Receive Date: 20180716
  Receipt Date: 20180813
  Transmission Date: 20181010
  Serious: No
  Sender: FDA-Public Use
  Company Number: US-PFIZER INC-2018285342

PATIENT
  Age: 51 Year
  Sex: Female

DRUGS (1)
  1. GABAPENTIN. [Suspect]
     Active Substance: GABAPENTIN
     Indication: NEUROPATHY PERIPHERAL
     Dosage: 10 MG, 2X/DAY
     Dates: start: 201506, end: 201608

REACTIONS (8)
  - Product use in unapproved indication [Unknown]
  - Disturbance in attention [Unknown]
  - Lethargy [Unknown]
  - Therapeutic response unexpected [Recovered/Resolved]
  - Fatigue [Unknown]
  - Mood swings [Unknown]
  - Pre-existing condition improved [Recovered/Resolved]
  - Weight increased [Recovered/Resolved]

NARRATIVE: CASE EVENT DATE: 201506
